FAERS Safety Report 8086457 (Version 7)
Quarter: 2013Q1

REPORT INFORMATION
  Report Type: Spontaneous
  Country: CA (occurrence: CA)
  Receive Date: 20110811
  Receipt Date: 20130327
  Transmission Date: 20140127
  Serious: Yes (Hospitalization, Other)
  Sender: FDA-Public Use
  Company Number: PHHY2011CA52162

PATIENT
  Age: 73 Year
  Sex: Male

DRUGS (3)
  1. AFINITOR [Suspect]
     Indication: NEUROENDOCRINE TUMOUR
     Dosage: 10 MG, QD
     Route: 048
     Dates: start: 20110514, end: 201109
  2. AFINITOR [Suspect]
     Dosage: 10 MG, DAILY
     Route: 048
     Dates: start: 20120114
  3. SANDOSTATIN LAR [Suspect]
     Indication: NEUROENDOCRINE TUMOUR
     Dosage: 40 MG, QMO
     Route: 030
     Dates: start: 20080808

REACTIONS (12)
  - Blood test abnormal [Unknown]
  - Feeling abnormal [Unknown]
  - Gastric haemorrhage [Unknown]
  - Bacterial infection [Unknown]
  - Ecchymosis [Unknown]
  - Contusion [Unknown]
  - Blood pressure decreased [Unknown]
  - Local swelling [Unknown]
  - Rash [Unknown]
  - Asthenia [Unknown]
  - Pruritus [Unknown]
  - Back pain [Not Recovered/Not Resolved]
